FAERS Safety Report 9680034 (Version 3)
Quarter: 2014Q2

REPORT INFORMATION
  Report Type: Report from Study
  Country: US (occurrence: US)
  Receive Date: 20131110
  Receipt Date: 20140603
  Transmission Date: 20141212
  Serious: No
  Sender: FDA-Public Use
  Company Number: US-SA-2013SA101519

PATIENT
  Age: 30 Year
  Sex: Female

DRUGS (2)
  1. KYNAMRO [Suspect]
     Indication: TYPE IIA HYPERLIPIDAEMIA
     Route: 058
     Dates: start: 20130919, end: 20140502
  2. GLYCERYL TRINITRATE [Concomitant]
     Indication: CHEST PAIN
     Route: 065

REACTIONS (15)
  - Hepatic enzyme increased [Unknown]
  - Decreased appetite [Unknown]
  - Injection site erythema [Unknown]
  - Injection site pruritus [Unknown]
  - Nausea [Unknown]
  - Pyrexia [Unknown]
  - Chills [Unknown]
  - Fatigue [Unknown]
  - Injection site pain [Not Recovered/Not Resolved]
  - Headache [Not Recovered/Not Resolved]
  - Fatigue [Not Recovered/Not Resolved]
  - Abdominal pain upper [Unknown]
  - Weight decreased [Unknown]
  - Diarrhoea [Not Recovered/Not Resolved]
  - Dizziness [Not Recovered/Not Resolved]
